FAERS Safety Report 7713948-7 (Version None)
Quarter: 2011Q3

REPORT INFORMATION
  Report Type: 
  Country: None (occurrence: None)
  Receive Date: 20110826
  Receipt Date: 20110824
  Transmission Date: 20111222
  Serious: Yes (Other)
  Sender: FDA-Public Use
  Company Number: CH-GILEAD-2011-0042964

PATIENT
  Age: 27 Year
  Sex: Female

DRUGS (13)
  1. TRUVADA [Suspect]
     Indication: HIV INFECTION
     Dates: start: 20100101, end: 20100812
  2. BACTRIM [Suspect]
     Indication: OPPORTUNISTIC INFECTION PROPHYLAXIS
     Dates: start: 20100101
  3. ITINEROL B6 [Suspect]
     Indication: VOMITING
  4. PRIMPERAN TAB [Suspect]
     Indication: NAUSEA
     Dates: start: 20100801
  5. KALETRA [Suspect]
     Dates: start: 20100830
  6. PRIMPERAN TAB [Suspect]
     Indication: VOMITING
  7. TRUVADA [Suspect]
     Dates: start: 20100830
  8. KALETRA [Suspect]
     Indication: HIV INFECTION
     Dates: start: 20100726
  9. VIRAMUNE [Suspect]
     Indication: HIV INFECTION
     Dates: start: 20100808, end: 20100812
  10. ATOVAQUONE [Suspect]
     Indication: OPPORTUNISTIC INFECTION PROPHYLAXIS
     Dates: start: 20100101
  11. ITINEROL B6 [Suspect]
     Indication: NAUSEA
     Dates: start: 20100823
  12. EFAVIRENZ [Suspect]
     Indication: HIV INFECTION
     Dates: start: 20100101, end: 20100726
  13. MALTOFER [Concomitant]
     Dates: start: 20100901

REACTIONS (2)
  - MATERNAL EXPOSURE DURING PREGNANCY [None]
  - VOMITING IN PREGNANCY [None]
